FAERS Safety Report 20429712 (Version 2)
Quarter: 2022Q1

REPORT INFORMATION
  Report Type: Spontaneous
  Country: US (occurrence: US)
  Receive Date: 20220204
  Receipt Date: 20220211
  Transmission Date: 20220423
  Serious: No
  Sender: FDA-Public Use
  Company Number: US-VERTEX PHARMACEUTICALS-2022-001714

PATIENT
  Age: 7 Year
  Sex: Male

DRUGS (1)
  1. TRIKAFTA [Suspect]
     Active Substance: ELEXACAFTOR\IVACAFTOR\TEZACAFTOR
     Indication: Cystic fibrosis
     Dosage: 2 TABS (50 MG ELEXA/25 MG TEZA/37.5 MG IVA) AM; 1 TAB (75 MG IVA) PM
     Route: 048
     Dates: start: 20210726

REACTIONS (1)
  - Hepatic enzyme increased [Unknown]
